FAERS Safety Report 5744753-9 (Version None)
Quarter: 2008Q2

REPORT INFORMATION
  Report Type: 
  Country: None (occurrence: None)
  Receive Date: 20080520
  Receipt Date: 20080508
  Transmission Date: 20081010
  Serious: Yes (Other)
  Sender: FDA-Public Use
  Company Number: PH-PFIZER INC-2008037534

PATIENT
  Sex: Female

DRUGS (2)
  1. UNASYN [Suspect]
     Route: 042
  2. UNASYN ORAL [Suspect]
     Route: 048

REACTIONS (1)
  - SUBCUTANEOUS ABSCESS [None]
